FAERS Safety Report 24129553 (Version 2)
Quarter: 2024Q3

REPORT INFORMATION
  Report Type: Report from Study
  Country: CA (occurrence: CA)
  Receive Date: 20240724
  Receipt Date: 20240822
  Transmission Date: 20241016
  Serious: Yes (Hospitalization, Other)
  Sender: ABBVIE
  Company Number: CA-ABBVIE-5847339

PATIENT
  Age: 22 Year
  Sex: Male

DRUGS (2)
  1. RINVOQ [Suspect]
     Active Substance: UPADACITINIB
     Indication: Crohn^s disease
     Dosage: DRUG END DATE 2024
     Route: 048
     Dates: start: 20240614
  2. RINVOQ [Suspect]
     Active Substance: UPADACITINIB
     Indication: Crohn^s disease
     Dosage: DRUG START DATE 2024
     Route: 048

REACTIONS (3)
  - Intestinal operation [Unknown]
  - Crohn^s disease [Not Recovered/Not Resolved]
  - Gastrointestinal obstruction [Unknown]

NARRATIVE: CASE EVENT DATE: 20240101
